FAERS Safety Report 24845706 (Version 1)
Quarter: 2025Q1

REPORT INFORMATION
  Report Type: Spontaneous
  Country: FR (occurrence: FR)
  Receive Date: 20250115
  Receipt Date: 20250115
  Transmission Date: 20250408
  Serious: Yes (Other)
  Sender: MERCK
  Company Number: None

PATIENT
  Age: 70 Year
  Sex: Female
  Weight: 126 kg

DRUGS (1)
  1. PEMBROLIZUMAB [Suspect]
     Active Substance: PEMBROLIZUMAB
     Indication: Uterine cancer
     Route: 042
     Dates: start: 20240301

REACTIONS (2)
  - Arthralgia [Not Recovered/Not Resolved]
  - Antinuclear antibody [Not Recovered/Not Resolved]

NARRATIVE: CASE EVENT DATE: 20240601
